FAERS Safety Report 5465869-0 (Version None)
Quarter: 2007Q3

REPORT INFORMATION
  Report Type: 
  Country: None (occurrence: None)
  Receive Date: 20070924
  Receipt Date: 20070914
  Transmission Date: 20080115
  Serious: Yes (Other)
  Sender: FDA-Public Use
  Company Number: PHNU2007DE03151

PATIENT

DRUGS (1)
  1. KARIL [Suspect]

REACTIONS (1)
  - POLYURIA [None]
